FAERS Safety Report 5944359-2 (Version None)
Quarter: 2008Q4

REPORT INFORMATION
  Report Type: 
  Country: None (occurrence: None)
  Receive Date: 20081106
  Receipt Date: 20081106
  Transmission Date: 20090506
  Serious: Yes (Death)
  Sender: FDA-Public Use
  Company Number: None

PATIENT
  Age: 45 Year
  Sex: Male
  Weight: 90.7194 kg

DRUGS (2)
  1. CELEBREX [Suspect]
     Indication: PROCEDURAL PAIN
     Dosage: 200MG ONCE A DAY PO
     Route: 048
     Dates: start: 20081021, end: 20081029
  2. CELEBREX [Suspect]
     Indication: TESTICULAR PAIN
     Dosage: 200MG ONCE A DAY PO
     Route: 048
     Dates: start: 20081021, end: 20081029

REACTIONS (1)
  - MYOCARDIAL INFARCTION [None]
